FAERS Safety Report 12816932 (Version 1)
Quarter: 2016Q4

REPORT INFORMATION
  Report Type: Spontaneous
  Country: US (occurrence: US)
  Receive Date: 20161005
  Receipt Date: 20161005
  Transmission Date: 20170207
  Serious: Yes (Hospitalization, Other)
  Sender: FDA-Public Use
  Company Number: None

PATIENT
  Age: 25 Year
  Sex: Male

DRUGS (4)
  1. ZYPREXA [Suspect]
     Active Substance: OLANZAPINE
     Indication: WRONG PATIENT RECEIVED MEDICATION
     Dosage: ?          QUANTITY:1 TABLET(S);?
     Route: 048
  2. LORAZEPAM. [Concomitant]
     Active Substance: LORAZEPAM
  3. ZOLOFT [Suspect]
     Active Substance: SERTRALINE HYDROCHLORIDE
     Indication: DEPRESSION
     Dosage: ?          QUANTITY:1 TABLET(S);?
     Route: 048
  4. ATIVAN [Concomitant]
     Active Substance: LORAZEPAM

REACTIONS (3)
  - Fatigue [None]
  - Depressed mood [None]
  - Anxiety [None]

NARRATIVE: CASE EVENT DATE: 20160704
